FAERS Safety Report 6520627-0 (Version None)
Quarter: 2009Q4

REPORT INFORMATION
  Report Type: 
  Country: None (occurrence: None)
  Receive Date: 20091229
  Receipt Date: 20091222
  Transmission Date: 20100525
  Serious: Yes (Death)
  Sender: FDA-Public Use
  Company Number: US-BRISTOL-MYERS SQUIBB COMPANY-14905533

PATIENT
  Age: 75 Year
  Sex: Male
  Weight: 136 kg

DRUGS (9)
  1. WARFARIN SODIUM [Suspect]
     Indication: CARDIOVASCULAR DISORDER
     Dosage: 1DF-7-7.5 MG
  2. WARFARIN SODIUM [Suspect]
     Indication: STENT PLACEMENT
     Dosage: 1DF-7-7.5 MG
  3. PLAVIX [Concomitant]
  4. ASPIRIN [Concomitant]
  5. NORVASC [Concomitant]
  6. METOPROLOL TARTRATE [Concomitant]
  7. METFORMIN [Concomitant]
     Dosage: 1000MG AM AND 500MG PM
  8. AMARYL [Concomitant]
  9. AUGMENTIN [Concomitant]
     Dosage: BID

REACTIONS (1)
  - MYOCARDIAL INFARCTION [None]
